FAERS Safety Report 5188123-3 (Version None)
Quarter: 2006Q4

REPORT INFORMATION
  Report Type: 
  Country: None (occurrence: None)
  Receive Date: 20061214
  Receipt Date: 20061206
  Transmission Date: 20070319
  Serious: Yes (Hospitalization)
  Sender: FDA-Public Use
  Company Number: CHWYE003122SEP06

PATIENT
  Age: 99 Year
  Sex: Female

DRUGS (11)
  1. EFFEXOR [Suspect]
     Dosage: 37.5 MG 1X PER 1 DAY ORAL
     Route: 048
  2. OXAZEPAM [Suspect]
     Dosage: 15 MG 1X PER 1 DAY ORAL
     Route: 048
  3. MORPHINE [Suspect]
     Indication: POSTOPERATIVE ANALGESIA
     Dosage: 3 MG 1X PER 1 DAY SC
     Route: 058
     Dates: start: 20060716, end: 20060716
  4. SEROQUEL [Suspect]
     Dosage: 25MG, ORAL
     Route: 048
  5. IBUPROFEN [Suspect]
     Indication: POSTOPERATIVE ANALGESIA
     Dosage: 0.2 MG 1X PER 1 DAY SUBLINGUAL
     Route: 060
     Dates: start: 20060717, end: 20060717
  6. TEMGESIC (BUPRENORPHINE, , 0) [Suspect]
     Dosage: 0.2 MG 1X PER 1 DAY SUBLINGUAL
     Route: 060
     Dates: start: 20060718, end: 20060718
  7. VERAPAMIL [Suspect]
     Dosage: 120 MG 1X PER 1 DAY ORAL
     Route: 048
  8. PERFALGAN (PARACETAMOL) [Concomitant]
  9. NEXIUM [Concomitant]
  10. METOPROLOL TARTRATE [Concomitant]
  11. COSAAR (LOSARTAN POTASSIUM) [Concomitant]

REACTIONS (7)
  - COMA [None]
  - DIARRHOEA [None]
  - DRUG INTERACTION [None]
  - DRUG WITHDRAWAL SYNDROME [None]
  - FEMORAL NECK FRACTURE [None]
  - PROCEDURAL PAIN [None]
  - VOMITING [None]
